FAERS Safety Report 16958794 (Version 1)
Quarter: 2019Q4

REPORT INFORMATION
  Report Type: Spontaneous
  Country: US (occurrence: US)
  Receive Date: 20191024
  Receipt Date: 20191024
  Transmission Date: 20200122
  Serious: Yes (Other)
  Sender: FDA-Public Use
  Company Number: US-FRESENIUS KABI-FK201911742

PATIENT
  Age: 22 Year
  Sex: Female

DRUGS (2)
  1. CHLOROPROCAINE (MANUFACTURER UNKNOWN) [Suspect]
     Active Substance: CHLOROPROCAINE
     Indication: NERVE BLOCK
     Route: 065
  2. CHLOROPROCAINE (MANUFACTURER UNKNOWN) [Suspect]
     Active Substance: CHLOROPROCAINE
     Route: 065

REACTIONS (4)
  - Bradycardia [Recovered/Resolved]
  - Exposure during pregnancy [Recovered/Resolved]
  - Blood pressure decreased [Recovered/Resolved]
  - Dyspnoea [Recovered/Resolved]
